FAERS Safety Report 12952935 (Version 2)
Quarter: 2016Q4

REPORT INFORMATION
  Report Type: Spontaneous
  Country: US (occurrence: US)
  Receive Date: 20161117
  Receipt Date: 20161214
  Transmission Date: 20170207
  Serious: Yes (Other)
  Sender: FDA-Public Use
  Company Number: US-BAYER-2016-218856

PATIENT
  Age: 26 Year
  Sex: Female
  Weight: 74.83 kg

DRUGS (3)
  1. MIRENA [Suspect]
     Active Substance: LEVONORGESTREL
     Dosage: 20 MCG/24HR, CONT
     Route: 015
     Dates: start: 20140519, end: 20161028
  2. MIRENA [Suspect]
     Active Substance: LEVONORGESTREL
  3. MIRENA [Suspect]
     Active Substance: LEVONORGESTREL
     Dosage: 20 MCG/24HR, CONT
     Route: 015
     Dates: start: 20161028

REACTIONS (12)
  - Dysmenorrhoea [None]
  - Pelvic pain [Recovered/Resolved]
  - Bladder pain [None]
  - Abdominal pain lower [None]
  - Device malfunction [None]
  - Stress urinary incontinence [None]
  - Ovarian cyst [Not Recovered/Not Resolved]
  - Embedded device [Recovered/Resolved]
  - Stress urinary incontinence [Not Recovered/Not Resolved]
  - Vaginal discharge [Recovered/Resolved]
  - Dyspareunia [None]
  - Vaginal haemorrhage [None]

NARRATIVE: CASE EVENT DATE: 20160922
